FAERS Safety Report 10162859 (Version 2)
Quarter: 2014Q2

REPORT INFORMATION
  Report Type: Report from Study
  Country: FR (occurrence: FR)
  Receive Date: 20140509
  Receipt Date: 20140610
  Transmission Date: 20141212
  Serious: Yes (Other)
  Sender: FDA-Public Use
  Company Number: PHHY2014FR055823

PATIENT
  Age: 62 Year
  Sex: Female
  Weight: 60 kg

DRUGS (11)
  1. ACLASTA/ZOLEDRONATE [Suspect]
     Indication: OSTEOPOROSIS
     Dosage: 5 MG, UNK
     Route: 042
  2. CORTICOSTEROIDS [Concomitant]
     Dates: start: 201311
  3. THEOSTAT [Concomitant]
     Dates: start: 2001
  4. SPIRIVA [Concomitant]
     Dates: start: 2001
  5. SYMBICORT [Concomitant]
     Dates: start: 2001
  6. DAFALGAN [Concomitant]
     Dates: start: 2000
  7. KARDEGIC [Concomitant]
     Dates: start: 2000
  8. FLECAINE [Concomitant]
     Dates: start: 2000
  9. TENORMINE [Concomitant]
     Dates: start: 2000
  10. ADALAT [Concomitant]
     Dates: start: 2008
  11. OGAST [Concomitant]
     Dates: start: 2008

REACTIONS (2)
  - Purpura [Recovering/Resolving]
  - Thrombocytopenia [Recovering/Resolving]
